FAERS Safety Report 8262044-1 (Version None)
Quarter: 2012Q2

REPORT INFORMATION
  Report Type: 
  Country: None (occurrence: None)
  Receive Date: 20120405
  Receipt Date: 20111115
  Transmission Date: 20120825
  Serious: Yes (Other)
  Sender: FDA-Public Use
  Company Number: US-ROCHE-1013400

PATIENT
  Sex: Female
  Weight: 52.2 kg

DRUGS (8)
  1. FOLIC ACID [Concomitant]
     Route: 048
     Dates: start: 20110901, end: 20111030
  2. CAFFEINE [Concomitant]
     Dosage: DOSE 1 SERVING
     Route: 048
     Dates: start: 20110901, end: 20111030
  3. HEPATITIS B VACCINE [Concomitant]
     Indication: HEPATITIS B IMMUNISATION
     Dates: start: 20110913, end: 20110913
  4. ACTEMRA [Suspect]
     Indication: RHEUMATOID ARTHRITIS
     Route: 042
     Dates: start: 20110922, end: 20110922
  5. IBUPROFEN [Concomitant]
     Indication: RHEUMATOID ARTHRITIS
     Route: 048
     Dates: start: 20110901, end: 20111011
  6. HEPATITIS B VACCINE [Concomitant]
     Dates: start: 20111011, end: 20111011
  7. PREDNISONE 50MG TAB [Concomitant]
     Indication: RHEUMATOID ARTHRITIS
     Route: 048
     Dates: start: 20110901, end: 20111006
  8. METHOTREXATE [Concomitant]
     Indication: RHEUMATOID ARTHRITIS
     Route: 048
     Dates: start: 20111001, end: 20111001

REACTIONS (2)
  - ABORTION SPONTANEOUS [None]
  - MATERNAL EXPOSURE DURING PREGNANCY [None]
